FAERS Safety Report 8246664-6 (Version None)
Quarter: 2012Q1

REPORT INFORMATION
  Report Type: 
  Country: None (occurrence: None)
  Receive Date: 20120316
  Receipt Date: 20090522
  Transmission Date: 20120608
  Serious: Yes (Other)
  Sender: FDA-Public Use
  Company Number: PHEH2009US05256

PATIENT
  Sex: Male

DRUGS (1)
  1. TEKTURNA [Suspect]
     Indication: NEPHROTIC SYNDROME
     Dosage: UNK, ORAL
     Route: 048
     Dates: start: 20080401

REACTIONS (2)
  - SWOLLEN TONGUE [None]
  - LIP SWELLING [None]
